FAERS Safety Report 4353348-3 (Version None)
Quarter: 2004Q2

REPORT INFORMATION
  Report Type: 
  Country: None (occurrence: None)
  Receive Date: 20040427
  Receipt Date: 20040408
  Transmission Date: 20050107
  Serious: No
  Sender: FDA-Public Use
  Company Number: 236319

PATIENT
  Sex: Female

DRUGS (1)
  1. NOVOSEVEN [Suspect]
     Indication: PROTHROMBIN LEVEL INCREASED
     Dosage: INTRAVENOUS
     Route: 042

REACTIONS (1)
  - CATHETER RELATED COMPLICATION [None]
